FAERS Safety Report 8137327-6 (Version None)
Quarter: 2012Q1

REPORT INFORMATION
  Report Type: 
  Country: None (occurrence: None)
  Receive Date: 20120210
  Receipt Date: 20120131
  Transmission Date: 20120608
  Serious: Yes (Other)
  Sender: FDA-Public Use
  Company Number: 2011IL0273

PATIENT
  Age: 49 Year
  Sex: Female

DRUGS (2)
  1. KINERET [Suspect]
     Indication: RHEUMATOID ARTHRITIS
     Dosage: 100 MG SUBCUTANEOUS
     Route: 058
     Dates: start: 20091101, end: 20100101
  2. ATENOLOL [Suspect]
     Dosage: 2 MG PER ORAL
     Route: 048

REACTIONS (9)
  - HEPATIC STEATOSIS [None]
  - HEPATOSPLENOMEGALY [None]
  - BLOOD LACTATE DEHYDROGENASE INCREASED [None]
  - FATIGUE [None]
  - HEPATIC NECROSIS [None]
  - ASPARTATE AMINOTRANSFERASE INCREASED [None]
  - LIVER INJURY [None]
  - FIBROSIS [None]
  - ALANINE AMINOTRANSFERASE INCREASED [None]
